FAERS Safety Report 7296122-0 (Version None)
Quarter: 2011Q1

REPORT INFORMATION
  Report Type: 
  Country: None (occurrence: None)
  Receive Date: 20110216
  Receipt Date: 20110210
  Transmission Date: 20110831
  Serious: Yes (Other)
  Sender: FDA-Public Use
  Company Number: CA-ROCHE-757607

PATIENT
  Sex: Female
  Weight: 51 kg

DRUGS (9)
  1. LYRICA [Concomitant]
     Indication: PAIN
  2. HYDROMORPHONE HCL [Concomitant]
     Dosage: DRUG NAME: HYDROMORPHINE
  3. BEVACIZUMAB [Suspect]
     Route: 042
     Dates: start: 20101230, end: 20110120
  4. DILAUDID [Concomitant]
     Indication: PAIN
     Dosage: DRUG: DILAUDID (CONTIN)
  5. COLACE [Concomitant]
  6. GRAVOL TAB [Concomitant]
  7. LORAZEPAM [Concomitant]
  8. SENOKOT [Concomitant]
  9. ZANAFLEX [Concomitant]

REACTIONS (2)
  - HEPATIC ENZYME INCREASED [None]
  - THROMBOSIS [None]
